FAERS Safety Report 7871853-X (Version None)
Quarter: 2011Q4

REPORT INFORMATION
  Report Type: 
  Country: None (occurrence: None)
  Receive Date: 20111029
  Receipt Date: 20110309
  Transmission Date: 20120403
  Serious: No
  Sender: FDA-Public Use
  Company Number: US-AMGEN-USASP2011013293

PATIENT
  Age: 48 Year
  Sex: Female

DRUGS (9)
  1. CALCIUM [Concomitant]
  2. ARAVA [Concomitant]
  3. LIPITOR [Concomitant]
  4. IBUPROFEN [Concomitant]
  5. PEPCID [Concomitant]
  6. MULTIPLE VITAMINS [Concomitant]
  7. VITAMIN D [Concomitant]
  8. ENBREL [Suspect]
     Indication: RHEUMATOID ARTHRITIS
     Dosage: 50 MG, QWK
     Dates: start: 20090101
  9. LOVAZA [Concomitant]

REACTIONS (2)
  - INJECTION SITE PARAESTHESIA [None]
  - INJECTION SITE PAIN [None]
